FAERS Safety Report 8120411-0 (Version None)
Quarter: 2012Q1

REPORT INFORMATION
  Report Type: 
  Country: None (occurrence: None)
  Receive Date: 20120207
  Receipt Date: 20120206
  Transmission Date: 20120608
  Serious: Yes (Death)
  Sender: FDA-Public Use
  Company Number: FR-BRACCO-000757

PATIENT
  Sex: Male

DRUGS (9)
  1. ZIAGEN [Concomitant]
     Indication: HIV TEST POSITIVE
  2. MULTIHANCE [Suspect]
     Indication: HEPATIC NEOPLASM MALIGNANT
     Route: 042
     Dates: start: 20120127, end: 20120127
  3. ZOLPIDEM [Concomitant]
  4. TUSSIDANE [Concomitant]
     Indication: BRONCHITIS
     Dates: start: 20120126
  5. ISENTRESS [Concomitant]
     Indication: HIV TEST POSITIVE
  6. MULTIHANCE [Suspect]
     Indication: LIVER SCAN
     Route: 042
     Dates: start: 20120127, end: 20120127
  7. HYDROCODONE BITARTRATE [Concomitant]
  8. AUGMENTIN '125' [Concomitant]
     Indication: BRONCHITIS
     Dates: start: 20120126
  9. SUSTIVA [Concomitant]
     Indication: HIV TEST POSITIVE

REACTIONS (2)
  - CARDIAC ARREST [None]
  - ANAPHYLACTIC REACTION [None]
